FAERS Safety Report 17196625 (Version 2)
Quarter: 2020Q1

REPORT INFORMATION
  Report Type: Spontaneous
  Country: US (occurrence: US)
  Receive Date: 20191224
  Receipt Date: 20200115
  Transmission Date: 20200409
  Serious: No
  Sender: FDA-Public Use
  Company Number: US-BAUSCH-BL-2019-064097

PATIENT
  Age: 71 Year
  Sex: Male
  Weight: 90.8 kg

DRUGS (2)
  1. LATANOPROST OPHTHALMIC SOLUTION 0.005 PERCENT [Suspect]
     Active Substance: LATANOPROST
     Indication: GLAUCOMA
     Dosage: THERAPY START DATE: 10 TO 12 DAYS AGO
     Route: 047
     Dates: start: 201911, end: 201912
  2. TIMOLOL. [Concomitant]
     Active Substance: TIMOLOL
     Indication: PRODUCT USED FOR UNKNOWN INDICATION

REACTIONS (2)
  - Product quality issue [Unknown]
  - Eye irritation [Unknown]

NARRATIVE: CASE EVENT DATE: 201911
